FAERS Safety Report 4694324-0 (Version None)
Quarter: 2005Q2

REPORT INFORMATION
  Report Type: 
  Country: None (occurrence: None)
  Receive Date: 20050614
  Receipt Date: 20050228
  Transmission Date: 20051028
  Serious: No
  Sender: FDA-Public Use
  Company Number: USA050391965

PATIENT
  Age: 76 Year
  Sex: Male

DRUGS (5)
  1. CIALIS [Suspect]
     Indication: ERECTILE DYSFUNCTION
     Dosage: 20 MG
     Dates: start: 20041001
  2. LISINOPRIL [Concomitant]
  3. LOVASTATIN [Concomitant]
  4. SYNTHROID [Concomitant]
  5. HYDROCHLOROTHIAZIDE W/TRIAMTERENE [Concomitant]

REACTIONS (2)
  - HEADACHE [None]
  - NASAL CONGESTION [None]
